FAERS Safety Report 9228042 (Version 1)
Quarter: 2013Q2

REPORT INFORMATION
  Report Type: Spontaneous
  Country: US (occurrence: US)
  Receive Date: 20130412
  Receipt Date: 20130412
  Transmission Date: 20140414
  Serious: No
  Sender: FDA-Public Use
  Company Number: US-GLAXOSMITHKLINE-A1009336A

PATIENT
  Age: 66 Year
  Sex: Male

DRUGS (4)
  1. JALYN [Suspect]
     Indication: BENIGN PROSTATIC HYPERPLASIA
     Dosage: 1CAP PER DAY
     Route: 048
     Dates: start: 201203
  2. BLOOD PRESSURE MEDICATION [Concomitant]
  3. PEPCID [Concomitant]
  4. PROMETRIUM [Concomitant]

REACTIONS (2)
  - Headache [Unknown]
  - Haematospermia [Unknown]
